FAERS Safety Report 12708720 (Version 3)
Quarter: 2016Q4

REPORT INFORMATION
  Report Type: Spontaneous
  Country: NL (occurrence: NL)
  Receive Date: 20160901
  Receipt Date: 20161020
  Transmission Date: 20170207
  Serious: Yes (Hospitalization, Other)
  Sender: FDA-Public Use
  Company Number: NL-GE HEALTHCARE MEDICAL DIAGNOSTICS-VISP-PR-1609S-0521

PATIENT
  Age: 72 Year
  Sex: Male
  Weight: 100 kg

DRUGS (13)
  1. PERINDOPRIL [Concomitant]
     Active Substance: PERINDOPRIL
  2. FINASTERIDE. [Concomitant]
     Active Substance: FINASTERIDE
  3. INSULIN [Concomitant]
     Active Substance: INSULIN NOS
  4. VISIPAQUE [Suspect]
     Active Substance: IODIXANOL
     Indication: CEREBRAL ARTERY OCCLUSION
     Route: 013
     Dates: start: 20160407, end: 20160407
  5. ACETYLSALICYLZUUR [Concomitant]
     Active Substance: ASPIRIN
  6. AMLODIPINE [Concomitant]
     Active Substance: AMLODIPINE BESYLATE
  7. VISIPAQUE [Suspect]
     Active Substance: IODIXANOL
     Indication: DIAGNOSTIC PROCEDURE
  8. ATORVASTATINE [Concomitant]
     Active Substance: ATORVASTATIN
  9. DIPYRIDAMOLE. [Concomitant]
     Active Substance: DIPYRIDAMOLE
  10. METOPROLOL. [Concomitant]
     Active Substance: METOPROLOL
  11. OMEPRAZOLE. [Concomitant]
     Active Substance: OMEPRAZOLE
  12. DORZOLAMIDE/TIMALOL [Concomitant]
  13. COLECALCIFEROL [Concomitant]
     Active Substance: CHOLECALCIFEROL

REACTIONS (4)
  - Monoparesis [Unknown]
  - Monoplegia [Unknown]
  - Aphasia [Unknown]
  - Blindness transient [Unknown]

NARRATIVE: CASE EVENT DATE: 20160407
